FAERS Safety Report 7481318-5 (Version None)
Quarter: 2011Q2

REPORT INFORMATION
  Report Type: 
  Country: None (occurrence: None)
  Receive Date: 20110512
  Receipt Date: 20110512
  Transmission Date: 20111010
  Serious: Yes (Other)
  Sender: FDA-Public Use
  Company Number: None

PATIENT
  Age: 39 Year
  Sex: Male
  Weight: 91.9 kg

DRUGS (6)
  1. KETOROLAC TROMETHAMINE [Concomitant]
  2. OXYCODONE HCL [Concomitant]
  3. POLYETHYLENE GLYCOL [Concomitant]
  4. OXYCONTIN [Concomitant]
  5. FOLIC ACID [Concomitant]
  6. DEMEROL [Suspect]
     Indication: PAIN
     Dosage: IV BOLUS, 25 MG Q 2 PRN SINGLE DOSE
     Route: 040
     Dates: start: 20100707

REACTIONS (1)
  - BLOOD PRESSURE DECREASED [None]
